FAERS Safety Report 8488878-6 (Version None)
Quarter: 2012Q3

REPORT INFORMATION
  Report Type: 
  Country: None (occurrence: None)
  Receive Date: 20120705
  Receipt Date: 20120625
  Transmission Date: 20120928
  Serious: Yes (Other)
  Sender: FDA-Public Use
  Company Number: BR-ASTRAZENECA-2010SE40435

PATIENT
  Age: 63 Year
  Sex: Female
  Weight: 78 kg

DRUGS (4)
  1. ATACAND [Suspect]
     Dosage: UNKNOWN DOSE BID/PRN
     Route: 048
     Dates: start: 20100801
  2. ATACAND [Suspect]
     Route: 048
     Dates: start: 20090101, end: 20100801
  3. INDAPAMIDE [Concomitant]
     Indication: HYPERTENSION
     Route: 048
     Dates: start: 20100801
  4. ATACAND [Suspect]
     Indication: HYPERTENSION
     Route: 048
     Dates: start: 20080101, end: 20090101

REACTIONS (5)
  - HYPERTENSION [None]
  - SOMNOLENCE [None]
  - DRUG INEFFECTIVE [None]
  - BLOOD PRESSURE INCREASED [None]
  - FATIGUE [None]
